FAERS Safety Report 11403808 (Version 3)
Quarter: 2017Q1

REPORT INFORMATION
  Report Type: Report from Study
  Country: US (occurrence: US)
  Receive Date: 20150821
  Receipt Date: 20170216
  Transmission Date: 20170428
  Serious: Yes (Hospitalization, Other)
  Sender: FDA-Public Use
  Company Number: US-AMGEN-USASP2015083866

PATIENT
  Age: 74 Year
  Sex: Female

DRUGS (3)
  1. ENBREL [Suspect]
     Active Substance: ETANERCEPT
     Indication: RHEUMATOID ARTHRITIS
     Dosage: 50 MG, QWK
     Route: 065
  2. ENBREL [Suspect]
     Active Substance: ETANERCEPT
     Dosage: 50 MG, QWK
     Route: 065
  3. ENBREL [Suspect]
     Active Substance: ETANERCEPT
     Dosage: 50 MG, QWK
     Route: 065
     Dates: end: 201601

REACTIONS (11)
  - Spinal fusion surgery [Unknown]
  - Arthralgia [Unknown]
  - Limb discomfort [Recovering/Resolving]
  - Pain in extremity [Recovering/Resolving]
  - Muscle atrophy [Recovering/Resolving]
  - Injection site haemorrhage [Unknown]
  - Peroneal nerve palsy [Unknown]
  - Injection site pain [Unknown]
  - Spinal laminectomy [Recovered/Resolved]
  - Hypoaesthesia [Recovering/Resolving]
  - Underdose [Unknown]

NARRATIVE: CASE EVENT DATE: 20140530
